FAERS Safety Report 6070595-3 (Version None)
Quarter: 2009Q1

REPORT INFORMATION
  Report Type: 
  Country: None (occurrence: None)
  Receive Date: 20090209
  Receipt Date: 20090128
  Transmission Date: 20090719
  Serious: Yes (Other)
  Sender: FDA-Public Use
  Company Number: US-PFIZER INC-2009162256

PATIENT
  Sex: Male
  Weight: 90.703 kg

DRUGS (1)
  1. CHANTIX [Suspect]
     Indication: SMOKING CESSATION THERAPY
     Dosage: 1 MG, 2X/DAY
     Dates: start: 20081227

REACTIONS (14)
  - ABNORMAL DREAMS [None]
  - AGITATION [None]
  - ANGER [None]
  - BIPOLAR DISORDER [None]
  - CHEST PAIN [None]
  - DEPRESSION [None]
  - FLUSHING [None]
  - HEART RATE INCREASED [None]
  - MOOD SWINGS [None]
  - NIGHTMARE [None]
  - PANIC ATTACK [None]
  - PARANOIA [None]
  - THINKING ABNORMAL [None]
  - VIOLENCE-RELATED SYMPTOM [None]
